FAERS Safety Report 6985454-9 (Version None)
Quarter: 2010Q3

REPORT INFORMATION
  Report Type: 
  Country: None (occurrence: None)
  Receive Date: 20100915
  Receipt Date: 20100909
  Transmission Date: 20110219
  Serious: Yes (Hospitalization, Disabling, Other)
  Sender: FDA-Public Use
  Company Number: A0877341A

PATIENT
  Age: 49 Year
  Sex: Male

DRUGS (8)
  1. VENTOLIN [Suspect]
     Indication: PRODUCT USED FOR UNKNOWN INDICATION
     Dates: start: 20091105
  2. ADVAIR DISKUS 100/50 [Suspect]
     Indication: PRODUCT USED FOR UNKNOWN INDICATION
     Dates: start: 20091105
  3. PLAVIX [Concomitant]
  4. METFORMIN [Concomitant]
  5. ACTOS [Concomitant]
  6. ALLEGRA [Concomitant]
  7. LORCET-HD [Concomitant]
  8. PREDNISONE [Concomitant]

REACTIONS (3)
  - CEREBRAL INFARCTION [None]
  - CEREBROVASCULAR ACCIDENT [None]
  - LACUNAR INFARCTION [None]
